FAERS Safety Report 4268107-X (Version None)
Quarter: 2004Q1

REPORT INFORMATION
  Report Type: 
  Country: None (occurrence: None)
  Receive Date: 20040109
  Receipt Date: 20031219
  Transmission Date: 20041129
  Serious: Yes (Death, Other)
  Sender: FDA-Public Use
  Company Number: PHEH2003US11620

PATIENT
  Age: 28 Year
  Sex: Female

DRUGS (5)
  1. GLEEVEC [Suspect]
     Indication: RENAL CELL CARCINOMA STAGE UNSPECIFIED
     Dosage: 300 MG, UNK
     Route: 048
     Dates: start: 20030707
  2. THALIDOMIDE [Suspect]
     Indication: RENAL CELL CARCINOMA STAGE UNSPECIFIED
     Dosage: 100 MG, QD
     Route: 048
     Dates: start: 20030707, end: 20030728
  3. TAXOTERE [Suspect]
  4. NAPROSYN                                /NOR/ [Concomitant]
  5. XELODA                                  /GFR/ [Concomitant]

REACTIONS (6)
  - MALIGNANT NEOPLASM PROGRESSION [None]
  - METASTASES TO LIVER [None]
  - RENAL CELL CARCINOMA STAGE IV [None]
  - RENAL CELL CARCINOMA STAGE UNSPECIFIED [None]
  - RENAL FAILURE [None]
  - RENAL TUBULAR NECROSIS [None]
